FAERS Safety Report 9527599 (Version 1)
Quarter: 2013Q3

REPORT INFORMATION
  Report Type: Spontaneous
  Country: US (occurrence: None)
  Receive Date: 20130913
  Receipt Date: 20130913
  Transmission Date: 20140515
  Serious: Yes (Other)
  Sender: FDA-Public Use
  Company Number: AUR-APL-2013-06945

PATIENT
  Age: 76 Year
  Sex: Male
  Weight: 90.7 kg

DRUGS (4)
  1. LISINOPRIL + HYDROCHLOROTHIAZIDE [Suspect]
     Indication: HYPERTENSION
     Route: 048
     Dates: end: 20130313
  2. LUMIGAN (BIMATOPROST) [Concomitant]
  3. CARTEOLOL (CARTEOLOL) [Concomitant]
  4. ALLOPURINOL [Concomitant]

REACTIONS (1)
  - Angioedema [None]
